FAERS Safety Report 7260601-2 (Version None)
Quarter: 2011Q1

REPORT INFORMATION
  Report Type: 
  Country: None (occurrence: None)
  Receive Date: 20110130
  Receipt Date: 20101110
  Transmission Date: 20110831
  Serious: No
  Sender: FDA-Public Use
  Company Number: US-ABBOTT-10P-163-0684578-00

PATIENT
  Age: 63 Year
  Sex: Female

DRUGS (8)
  1. MILK THISTLE [Concomitant]
     Indication: HEPATIC FUNCTION ABNORMAL
  2. ASPIRIN [Concomitant]
     Indication: CARDIOVASCULAR EVENT PROPHYLAXIS
  3. MTX [Concomitant]
     Indication: PSORIASIS
     Dosage: SIX 2.5MG TABLETS WEEKLY
  4. MULTI-VITAMIN [Concomitant]
     Indication: PRODUCT USED FOR UNKNOWN INDICATION
  5. ZOLOFT [Concomitant]
     Indication: DEPRESSION
  6. HUMIRA [Suspect]
     Indication: PSORIATIC ARTHROPATHY
     Dates: start: 20090401
  7. SIMVASTATIN [Concomitant]
     Indication: BLOOD CHOLESTEROL INCREASED
  8. FISH OIL [Concomitant]
     Indication: MINERAL SUPPLEMENTATION

REACTIONS (2)
  - VISUAL IMPAIRMENT [None]
  - ABNORMAL SENSATION IN EYE [None]
